FAERS Safety Report 4382514-6 (Version None)
Quarter: 2004Q2

REPORT INFORMATION
  Report Type: 
  Country: None (occurrence: None)
  Receive Date: 20040609
  Receipt Date: 20040520
  Transmission Date: 20050107
  Serious: Yes (Other)
  Sender: FDA-Public Use
  Company Number: 601275

PATIENT
  Age: 13 Month
  Sex: Male

DRUGS (1)
  1. RECOMBINATE [Suspect]
     Indication: FACTOR VIII DEFICIENCY
     Dosage: TIW; INTRAVENOUS
     Route: 042
     Dates: start: 19991101, end: 20000501

REACTIONS (1)
  - FACTOR VIII INHIBITION [None]
